FAERS Safety Report 5358625-5 (Version None)
Quarter: 2007Q2

REPORT INFORMATION
  Report Type: 
  Country: None (occurrence: None)
  Receive Date: 20070614
  Receipt Date: 20070614
  Transmission Date: 20071010
  Serious: Yes (Disabling)
  Sender: FDA-Public Use
  Company Number: None

PATIENT
  Sex: Male
  Weight: 92.9874 kg

DRUGS (1)
  1. VYTORIN [Suspect]
     Indication: BLOOD CHOLESTEROL INCREASED
     Dosage: ONE TAB DAILY PO
     Route: 048
     Dates: start: 20060919, end: 20070531

REACTIONS (6)
  - ASTHENIA [None]
  - DISCOMFORT [None]
  - MUSCLE FATIGUE [None]
  - MYALGIA [None]
  - PAIN [None]
  - WEIGHT INCREASED [None]
